FAERS Safety Report 24722369 (Version 1)
Quarter: 2024Q4

REPORT INFORMATION
  Report Type: Spontaneous
  Country: CN (occurrence: CN)
  Receive Date: 20241211
  Receipt Date: 20241211
  Transmission Date: 20250115
  Serious: Yes (Hospitalization, Other)
  Sender: MERCK
  Company Number: CN-009507513-2412CHN003866

PATIENT
  Age: 69 Year
  Sex: Female

DRUGS (1)
  1. TEMOZOLOMIDE [Suspect]
     Active Substance: TEMOZOLOMIDE
     Dosage: UNK, 5 DAYS EVERY 28 DAYS
     Dates: start: 2023, end: 2023

REACTIONS (5)
  - Myelosuppression [Unknown]
  - Cognitive disorder [Unknown]
  - Hypersomnia [Unknown]
  - Cerebral ventricle dilatation [Unknown]
  - Malignant neoplasm progression [Unknown]

NARRATIVE: CASE EVENT DATE: 20231201
